FAERS Safety Report 16090692 (Version 1)
Quarter: 2019Q1

REPORT INFORMATION
  Report Type: Spontaneous
  Country: JP (occurrence: JP)
  Receive Date: 20190319
  Receipt Date: 20190319
  Transmission Date: 20190418
  Serious: Yes (Death, Other)
  Sender: FDA-Public Use
  Company Number: JP-GILEAD-2019-0394503

PATIENT
  Age: 7 Decade
  Sex: Female

DRUGS (1)
  1. VEMLIDY [Suspect]
     Active Substance: TENOFOVIR ALAFENAMIDE FUMARATE
     Indication: CHRONIC HEPATITIS B
     Dosage: 25 MG
     Route: 045
     Dates: end: 20190308

REACTIONS (3)
  - Graft versus host disease [Fatal]
  - General physical health deterioration [Fatal]
  - Off label use [Unknown]

NARRATIVE: CASE EVENT DATE: 20190304
